FAERS Safety Report 4773758-X (Version None)
Quarter: 2005Q3

REPORT INFORMATION
  Report Type: 
  Country: None (occurrence: None)
  Receive Date: 20050920
  Receipt Date: 20050609
  Transmission Date: 20060218
  Serious: Yes (Hospitalization, Disabling, Other)
  Sender: FDA-Public Use
  Company Number: US-MERCK-0506USA01869

PATIENT
  Age: 43 Year
  Sex: Female
  Weight: 139 kg

DRUGS (1)
  1. VIOXX [Suspect]
     Indication: RHEUMATOID ARTHRITIS
     Route: 048
     Dates: start: 20000801, end: 20030601

REACTIONS (9)
  - CELLULITIS [None]
  - DEEP VEIN THROMBOSIS [None]
  - DEPRESSION [None]
  - GASTROINTESTINAL DISORDER [None]
  - INTERNATIONAL NORMALISED RATIO INCREASED [None]
  - INTERVERTEBRAL DISC PROTRUSION [None]
  - PRESCRIBED OVERDOSE [None]
  - PULMONARY EMBOLISM [None]
  - TRICHOMONIASIS [None]
